FAERS Safety Report 17819903 (Version 1)
Quarter: 2020Q2

REPORT INFORMATION
  Report Type: Spontaneous
  Country: US (occurrence: US)
  Receive Date: 20200524
  Receipt Date: 20200524
  Transmission Date: 20200714
  Serious: Yes (Other)
  Sender: FDA-Public Use
  Company Number: US-BAXTER-2020BAX010296

PATIENT
  Sex: Female

DRUGS (3)
  1. TEDIZOLID [Concomitant]
     Active Substance: TEDIZOLID
     Indication: ANTIBIOTIC THERAPY
     Route: 065
  2. VANCOMYCIN INJECTION, USP [Suspect]
     Active Substance: VANCOMYCIN
     Indication: ANTIBIOTIC THERAPY
     Route: 065
  3. CEFALEXIN [Concomitant]
     Active Substance: CEPHALEXIN
     Indication: ANTIBIOTIC THERAPY
     Route: 065
     Dates: end: 201805

REACTIONS (1)
  - Dermatitis bullous [Unknown]
